FAERS Safety Report 12876789 (Version 2)
Quarter: 2016Q4

REPORT INFORMATION
  Report Type: Spontaneous
  Country: AT (occurrence: AT)
  Receive Date: 20161024
  Receipt Date: 20161025
  Transmission Date: 20170207
  Serious: No
  Sender: FDA-Public Use
  Company Number: AT-SA-2016SA189895

PATIENT
  Age: 33 Year
  Sex: Female

DRUGS (3)
  1. NATALIZUMAB [Concomitant]
     Active Substance: NATALIZUMAB
  2. AMINOPYRIDINE [Concomitant]
     Active Substance: DALFAMPRIDINE
  3. LEMTRADA [Suspect]
     Active Substance: ALEMTUZUMAB
     Indication: MULTIPLE SCLEROSIS
     Route: 042
     Dates: start: 201506

REACTIONS (1)
  - Blood thyroid stimulating hormone increased [Recovered/Resolved]
